FAERS Safety Report 6445301-0 (Version None)
Quarter: 2009Q4

REPORT INFORMATION
  Report Type: 
  Country: None (occurrence: None)
  Receive Date: 20091116
  Receipt Date: 20091102
  Transmission Date: 20100525
  Serious: Yes (Other)
  Sender: FDA-Public Use
  Company Number: 2009AP004404

PATIENT
  Age: 59 Year
  Sex: Male

DRUGS (4)
  1. ALLOPURINOL [Suspect]
     Indication: GOUTY ARTHRITIS
  2. NSAIDS [Concomitant]
  3. COLCHICINE [Concomitant]
  4. PROBENECID [Concomitant]

REACTIONS (5)
  - HEPATIC ENZYME DECREASED [None]
  - KERATITIS [None]
  - MOUTH ULCERATION [None]
  - RENAL FAILURE [None]
  - STEVENS-JOHNSON SYNDROME [None]
